FAERS Safety Report 14901907 (Version 2)
Quarter: 2019Q1

REPORT INFORMATION
  Report Type: Spontaneous
  Country: JP (occurrence: JP)
  Receive Date: 20180516
  Receipt Date: 20190103
  Transmission Date: 20190417
  Serious: Yes (Life-Threatening, Other)
  Sender: FDA-Public Use
  Company Number: JP-CONCORDIA PHARMACEUTICALS INC.-E2B_00011753

PATIENT
  Age: 82 Year
  Sex: Female

DRUGS (7)
  1. CYCLOPHOSPHAMIDE. [Concomitant]
     Active Substance: CYCLOPHOSPHAMIDE
     Indication: HAEMOLYTIC ANAEMIA
  2. RITUXIMAB. [Concomitant]
     Active Substance: RITUXIMAB
  3. PREDNISOLONE. [Suspect]
     Active Substance: PREDNISOLONE
     Indication: COLD TYPE HAEMOLYTIC ANAEMIA
     Route: 048
  4. RITUXIMAB. [Concomitant]
     Active Substance: RITUXIMAB
     Indication: HAEMOLYTIC ANAEMIA
  5. DEXAMETHASONE. [Concomitant]
     Active Substance: DEXAMETHASONE
     Indication: HAEMOLYTIC ANAEMIA
  6. MELPHALAN. [Suspect]
     Active Substance: MELPHALAN
  7. BORTEZOMIB. [Suspect]
     Active Substance: BORTEZOMIB

REACTIONS (3)
  - Monoclonal B-cell lymphocytosis [Unknown]
  - Drug ineffective [Unknown]
  - Cardiac failure [Unknown]
